FAERS Safety Report 16909452 (Version 1)
Quarter: 2019Q4

REPORT INFORMATION
  Report Type: Spontaneous
  Country: SE (occurrence: SE)
  Receive Date: 20191011
  Receipt Date: 20191011
  Transmission Date: 20200122
  Serious: Yes (Hospitalization, Other)
  Sender: FDA-Public Use
  Company Number: SE-TEVA-2019-SE-1118896

PATIENT
  Age: 75 Year
  Sex: Male

DRUGS (23)
  1. OMEPRAZOL [Concomitant]
     Active Substance: OMEPRAZOLE
  2. PREDNISOLON PFIZER [Concomitant]
     Active Substance: PREDNISOLONE
  3. PURINETHOL [Suspect]
     Active Substance: MERCAPTOPURINE
     Route: 065
  4. LASIX [Suspect]
     Active Substance: FUROSEMIDE
     Route: 065
  5. NORSPAN [Concomitant]
     Active Substance: BUPRENORPHINE
  6. METFORMIN [Concomitant]
     Active Substance: METFORMIN HYDROCHLORIDE
  7. OXIS [Concomitant]
     Active Substance: FORMOTEROL FUMARATE
  8. FOLACIN [Concomitant]
  9. ASACOL [Concomitant]
     Active Substance: MESALAMINE
  10. RAMIPRIL. [Suspect]
     Active Substance: RAMIPRIL
     Route: 065
  11. FUROSEMIDE. [Suspect]
     Active Substance: FUROSEMIDE
     Indication: PRODUCT USED FOR UNKNOWN INDICATION
     Dosage: UNK
     Route: 065
  12. TRAMADOL ACTAVIS [Concomitant]
     Active Substance: TRAMADOL
  13. ZOLPIDEM [Concomitant]
     Active Substance: ZOLPIDEM TARTRATE
  14. ALLOPURINOL. [Concomitant]
     Active Substance: ALLOPURINOL
  15. SPIRONOLAKTON [Concomitant]
     Active Substance: SPIRONOLACTONE
  16. COCILLANA-ETYFIN [Concomitant]
     Active Substance: ETHYLMORPHINE HYDROCHLORIDE\HERBALS
  17. SOTALOL. [Concomitant]
     Active Substance: SOTALOL
  18. ALVEDON [Concomitant]
     Active Substance: ACETAMINOPHEN
  19. KALCIPOS-D [Concomitant]
     Active Substance: CALCIUM CARBONATE\CHOLECALCIFEROL
  20. TROMBYL [Concomitant]
     Active Substance: ASPIRIN
  21. ALENDRONAT ACCORD VECKOTABLETT [Concomitant]
  22. SPIRIVA [Concomitant]
     Active Substance: TIOTROPIUM BROMIDE MONOHYDRATE
  23. ACETYLCYSTEIN MEDA [Concomitant]

REACTIONS (2)
  - Hepatotoxicity [Unknown]
  - Acute kidney injury [Unknown]

NARRATIVE: CASE EVENT DATE: 20120723
